FAERS Safety Report 7865663-7 (Version None)
Quarter: 2011Q4

REPORT INFORMATION
  Report Type: 
  Country: None (occurrence: None)
  Receive Date: 20111028
  Receipt Date: 20110203
  Transmission Date: 20120403
  Serious: No
  Sender: FDA-Public Use
  Company Number: US-GLAXOSMITHKLINE-A0911682A

PATIENT
  Age: 47 Year
  Sex: Female

DRUGS (2)
  1. ADVAIR DISKUS 100/50 [Suspect]
     Indication: ASTHMA
     Dosage: 1PUFF SINGLE DOSE
     Route: 055
     Dates: start: 20110130, end: 20110130
  2. NEXIUM [Concomitant]

REACTIONS (5)
  - DYSPNOEA [None]
  - DIZZINESS [None]
  - RESPIRATION ABNORMAL [None]
  - CHEST PAIN [None]
  - RESPIRATORY RATE INCREASED [None]
